FAERS Safety Report 12708792 (Version 1)
Quarter: 2016Q3

REPORT INFORMATION
  Report Type: Spontaneous
  Country: GB (occurrence: GB)
  Receive Date: 20160901
  Receipt Date: 20160901
  Transmission Date: 20161109
  Serious: Yes (Other)
  Sender: FDA-Public Use
  Company Number: GB-TEVA-687525ACC

PATIENT
  Age: 54 Year
  Sex: Female
  Weight: 60.32 kg

DRUGS (2)
  1. MIRTAZAPINE. [Suspect]
     Active Substance: MIRTAZAPINE
     Indication: INSOMNIA
     Route: 048
     Dates: start: 20110910
  2. FLUANXOL [Concomitant]
     Active Substance: FLUPENTIXOL
     Indication: DEPRESSION

REACTIONS (1)
  - Paranoia [Recovering/Resolving]

NARRATIVE: CASE EVENT DATE: 20111010
